FAERS Safety Report 24824870 (Version 2)
Quarter: 2025Q1

REPORT INFORMATION
  Report Type: Spontaneous
  Country: PT (occurrence: PT)
  Receive Date: 20250109
  Receipt Date: 20250124
  Transmission Date: 20250409
  Serious: Yes (Hospitalization)
  Sender: TEVA
  Company Number: PT-TEVA-VS-3282640

PATIENT
  Age: 61 Year
  Sex: Male

DRUGS (4)
  1. AMOXICILLIN [Suspect]
     Active Substance: AMOXICILLIN
     Indication: Helicobacter gastritis
     Route: 065
  2. LEVETIRACETAM [Suspect]
     Active Substance: LEVETIRACETAM
     Indication: Frontal lobe epilepsy
     Route: 065
  3. CLARITHROMYCIN [Suspect]
     Active Substance: CLARITHROMYCIN
     Indication: Helicobacter gastritis
     Route: 065
  4. METRONIDAZOLE [Suspect]
     Active Substance: METRONIDAZOLE
     Indication: Helicobacter gastritis
     Route: 065

REACTIONS (3)
  - Encephalopathy [Recovered/Resolved]
  - Frontal lobe epilepsy [Recovered/Resolved]
  - Drug ineffective [Unknown]
